FAERS Safety Report 5920330-1 (Version None)
Quarter: 2008Q4

REPORT INFORMATION
  Report Type: 
  Country: None (occurrence: None)
  Receive Date: 20081016
  Receipt Date: 20081007
  Transmission Date: 20090506
  Serious: Yes (Disabling)
  Sender: FDA-Public Use
  Company Number: PHHY2008FR22585

PATIENT
  Sex: Female
  Weight: 101 kg

DRUGS (10)
  1. ZOMETA [Suspect]
     Indication: METASTASES TO BONE
     Dosage: 4 MG, QMO
     Dates: start: 20060401, end: 20080501
  2. FEMARA [Concomitant]
     Indication: BREAST CANCER
     Dosage: UNK
     Dates: start: 20060201
  3. OSTRAM [Concomitant]
     Dosage: 1.2 G
     Dates: start: 20000101
  4. AMLODIPINE [Concomitant]
     Indication: HYPERTENSION
     Dosage: 5 MG
     Dates: start: 20000101
  5. ATENOLOL [Concomitant]
     Indication: HYPERTENSION
     Dosage: 100 MG/DAY
     Dates: start: 19880101
  6. SIMVASTATIN [Concomitant]
     Indication: HYPERCHOLESTEROLAEMIA
     Dosage: 20 M
     Dates: start: 19920101
  7. AMIODARONE [Concomitant]
     Indication: ARRHYTHMIA
     Dosage: UNK
     Dates: start: 20020101
  8. HYZAAR [Concomitant]
     Dosage: UNK
     Route: 048
     Dates: start: 19880101, end: 20000101
  9. PREVISCAN [Concomitant]
     Dosage: UNK
     Route: 048
     Dates: start: 19880101, end: 20000101
  10. CALCIUM [Concomitant]
     Dosage: UNK
     Route: 048
     Dates: start: 19880101, end: 20000101

REACTIONS (5)
  - DEBRIDEMENT [None]
  - GINGIVAL INFECTION [None]
  - GINGIVAL PAIN [None]
  - GINGIVAL ULCERATION [None]
  - OSTEONECROSIS [None]
